FAERS Safety Report 9790039 (Version 2)
Quarter: 2014Q1

REPORT INFORMATION
  Report Type: Spontaneous
  Country: US (occurrence: US)
  Receive Date: 20131231
  Receipt Date: 20140103
  Transmission Date: 20141002
  Serious: No
  Sender: FDA-Public Use
  Company Number: US-PFIZER INC-2013370943

PATIENT
  Age: 5 Year
  Sex: Female
  Weight: 22.68 kg

DRUGS (1)
  1. JUNIOR STRENGTH ADVIL [Suspect]
     Indication: PYREXIA
     Dosage: UNK, ONCE
     Route: 048
     Dates: start: 20131219, end: 20131219

REACTIONS (2)
  - Vomiting [Recovered/Resolved]
  - Tonsillitis [Unknown]
